FAERS Safety Report 12281912 (Version 2)
Quarter: 2016Q2

REPORT INFORMATION
  Report Type: Report from Study
  Country: DE (occurrence: DE)
  Receive Date: 20160419
  Receipt Date: 20160513
  Transmission Date: 20160815
  Serious: Yes (Hospitalization)
  Sender: FDA-Public Use
  Company Number: DE-INCYTE CORPORATION-2016IN002166

PATIENT
  Sex: Male
  Weight: 108.6 kg

DRUGS (6)
  1. MAGNESIUM [Concomitant]
     Active Substance: MAGNESIUM
     Dosage: 100 MG, QD
     Route: 065
  2. INCB018424 [Suspect]
     Active Substance: RUXOLITINIB
     Indication: PRIMARY MYELOFIBROSIS
     Dosage: 20 MG, QD (2 DF)
     Route: 048
     Dates: start: 20140225
  3. CLEXANE [Concomitant]
     Active Substance: ENOXAPARIN SODIUM
     Indication: THROMBOSIS
     Dosage: 100 MG, 2 X PER DAY
     Route: 065
     Dates: start: 20160222
  4. INCB018424 [Suspect]
     Active Substance: RUXOLITINIB
     Dosage: 5 MG, QD (5 DF)
     Route: 048
     Dates: start: 20141223
  5. ACETYLSALICYLIC ACID [Concomitant]
     Active Substance: ASPIRIN
     Indication: CARDIOVASCULAR DISORDER
     Dosage: 100 MG, QD
     Route: 065
     Dates: start: 20090101, end: 20150212
  6. MAGNESIUM [Concomitant]
     Active Substance: MAGNESIUM
     Indication: PRODUCT USED FOR UNKNOWN INDICATION
     Dosage: 100 MG, QD
     Route: 065

REACTIONS (2)
  - Atypical pneumonia [Recovering/Resolving]
  - Splenomegaly [Unknown]

NARRATIVE: CASE EVENT DATE: 20160404
